FAERS Safety Report 7604684-6 (Version None)
Quarter: 2011Q3

REPORT INFORMATION
  Report Type: 
  Country: None (occurrence: None)
  Receive Date: 20110712
  Receipt Date: 20110711
  Transmission Date: 20111222
  Serious: Yes (Life-Threatening, Hospitalization)
  Sender: FDA-Public Use
  Company Number: AU-B.I. PHARMACEUTICALS,INC./RIDGEFIELD-2011-AU-00335AU

PATIENT
  Sex: Male
  Weight: 91 kg

DRUGS (6)
  1. COUMADIN [Concomitant]
     Dates: start: 20050101
  2. MICARDIS [Suspect]
     Indication: CARDIAC FAILURE CONGESTIVE
     Dosage: 40 MG
     Dates: start: 20110603, end: 20110603
  3. FUROSEMIDE [Concomitant]
     Dosage: 80 MG
     Route: 042
     Dates: start: 20050101
  4. PANADOL OSTEO [Concomitant]
     Dates: start: 20090101
  5. CARVEDILOL [Concomitant]
     Dosage: 25 MG
     Dates: start: 20050101
  6. SPIRONOLACTONE [Concomitant]
     Dosage: 25 MG
     Dates: start: 20070101

REACTIONS (2)
  - COMA [None]
  - HYPOTENSION [None]
